FAERS Safety Report 24603034 (Version 1)
Quarter: 2024Q4

REPORT INFORMATION
  Report Type: Spontaneous
  Country: US (occurrence: None)
  Receive Date: 20241108
  Receipt Date: 20241108
  Transmission Date: 20250114
  Serious: Yes (Hospitalization)
  Sender: Public
  Company Number: None

PATIENT
  Age: 58 Year
  Sex: Female

DRUGS (1)
  1. CYANOCOBALAMIN\GLYCINE\TIRZEPATIDE [Suspect]
     Active Substance: CYANOCOBALAMIN\GLYCINE\TIRZEPATIDE
     Dosage: OTHER FREQUENCY : WEEKLY;?
     Route: 058
     Dates: start: 20240604, end: 20241028

REACTIONS (5)
  - Abdominal pain upper [None]
  - Feeling abnormal [None]
  - Vomiting [None]
  - Loss of consciousness [None]
  - Hypotension [None]

NARRATIVE: CASE EVENT DATE: 20241028
